FAERS Safety Report 18249451 (Version 1)
Quarter: 2020Q3

REPORT INFORMATION
  Report Type: Report from Study
  Country: CA (occurrence: CA)
  Receive Date: 20200909
  Receipt Date: 20200909
  Transmission Date: 20201103
  Serious: Yes (Other)
  Sender: FDA-Public Use
  Company Number: CA-JNJFOC-20190632244

PATIENT
  Age: 17 Year
  Sex: Female
  Weight: 72 kg

DRUGS (1)
  1. REMICADE [Suspect]
     Active Substance: INFLIXIMAB
     Indication: COLITIS ULCERATIVE
     Route: 042
     Dates: start: 20190211

REACTIONS (3)
  - Haematochezia [Unknown]
  - General physical health deterioration [Unknown]
  - Alopecia [Unknown]

NARRATIVE: CASE EVENT DATE: 20190624
